FAERS Safety Report 7298892-4 (Version None)
Quarter: 2011Q1

REPORT INFORMATION
  Report Type: 
  Country: None (occurrence: None)
  Receive Date: 20110217
  Receipt Date: 20110214
  Transmission Date: 20110831
  Serious: Yes (Hospitalization)
  Sender: FDA-Public Use
  Company Number: CO-ROCHE-759649

PATIENT
  Sex: Female

DRUGS (1)
  1. CELLCEPT [Suspect]
     Indication: VASCULITIS
     Dosage: FREQUENCY: Q30
     Route: 048
     Dates: start: 20091012

REACTIONS (1)
  - CHOLECYSTITIS [None]
